FAERS Safety Report 9732658 (Version 2)
Quarter: 2013Q4

REPORT INFORMATION
  Report Type: Spontaneous
  Country: US (occurrence: US)
  Receive Date: 20131205
  Receipt Date: 20131211
  Transmission Date: 20140711
  Serious: No
  Sender: FDA-Public Use
  Company Number: US-BAYER-2013-143419

PATIENT
  Age: 55 Year
  Sex: Female
  Weight: 77 kg

DRUGS (4)
  1. ALEVE CAPLET [Suspect]
     Indication: BACK PAIN
     Dosage: 2 DF, PRN
     Route: 048
     Dates: start: 20131120
  2. CELEBREX [Concomitant]
  3. NEXIUM [Concomitant]
  4. GLUCOSAMINE [Concomitant]

REACTIONS (2)
  - Pre-existing condition improved [None]
  - Off label use [None]
